FAERS Safety Report 6059227-8 (Version None)
Quarter: 2009Q1

REPORT INFORMATION
  Report Type: 
  Country: None (occurrence: None)
  Receive Date: 20090130
  Receipt Date: 20090119
  Transmission Date: 20090719
  Serious: Yes (Other)
  Sender: FDA-Public Use
  Company Number: US-PFIZER INC-2009158230

PATIENT
  Sex: Female
  Weight: 63.502 kg

DRUGS (5)
  1. SILDENAFIL CITRATE [Suspect]
     Indication: PULMONARY HYPERTENSION
     Dates: start: 20060101
  2. ALL OTHER THERAPEUTIC PRODUCTS [Concomitant]
     Dosage: UNK
  3. LASIX [Concomitant]
     Dosage: UNK
  4. DIGOXIN [Concomitant]
     Dosage: 125 MG, 1X/DAY
  5. DIURETICS [Concomitant]

REACTIONS (4)
  - DRY MOUTH [None]
  - HYPERSENSITIVITY [None]
  - LIP EXFOLIATION [None]
  - RASH GENERALISED [None]
